FAERS Safety Report 21945045 (Version 2)
Quarter: 2023Q1

REPORT INFORMATION
  Report Type: Other
  Country: JP (occurrence: JP)
  Receive Date: 20230202
  Receipt Date: 20230309
  Transmission Date: 20230418
  Serious: Yes (Other)
  Sender: FDA-Public Use
  Company Number: JP-CHUGAI-2022008992

PATIENT
  Age: 68 Year
  Sex: Male

DRUGS (4)
  1. BEVACIZUMAB [Suspect]
     Active Substance: BEVACIZUMAB
     Indication: Hepatocellular carcinoma
     Route: 041
     Dates: start: 20210708, end: 20220303
  2. ATEZOLIZUMAB [Suspect]
     Active Substance: ATEZOLIZUMAB
     Indication: Hepatocellular carcinoma
     Route: 041
     Dates: start: 20210708, end: 20220331
  3. REBAMIPIDE [Concomitant]
     Active Substance: REBAMIPIDE
     Route: 065
  4. LANSOPRAZOLE [Concomitant]
     Active Substance: LANSOPRAZOLE
     Route: 065

REACTIONS (12)
  - Ascites [Not Recovered/Not Resolved]
  - Hypertension [Unknown]
  - Haemorrhage [Recovered/Resolved]
  - Stomatitis [Recovered/Resolved]
  - Rash [Recovered/Resolved]
  - Fatigue [Unknown]
  - Hepatic function abnormal [Unknown]
  - Proteinuria [Recovered/Resolved]
  - Contusion [Unknown]
  - Diarrhoea [Unknown]
  - Pain in extremity [Recovered/Resolved]
  - Urinary occult blood [Not Recovered/Not Resolved]

NARRATIVE: CASE EVENT DATE: 20210708
